FAERS Safety Report 5515184-1 (Version None)
Quarter: 2007Q4

REPORT INFORMATION
  Report Type: 
  Country: None (occurrence: None)
  Receive Date: 20071113
  Receipt Date: 20070131
  Transmission Date: 20080405
  Serious: No
  Sender: FDA-Public Use
  Company Number: A0637811A

PATIENT
  Age: 59 Year

DRUGS (4)
  1. COREG [Suspect]
     Dosage: 12.5MG TWICE PER DAY
     Route: 048
     Dates: start: 20070116, end: 20070119
  2. NORVASC [Concomitant]
  3. ATENOLOL [Concomitant]
  4. DIURETIC [Concomitant]

REACTIONS (2)
  - CHEST DISCOMFORT [None]
  - PALPITATIONS [None]
